FAERS Safety Report 15629322 (Version 1)
Quarter: 2018Q4

REPORT INFORMATION
  Report Type: Spontaneous
  Country: US (occurrence: US)
  Receive Date: 20181117
  Receipt Date: 20181117
  Transmission Date: 20190205
  Serious: No
  Sender: FDA-Public Use
  Company Number: US-TRIS PHARMA, INC.-2018TRISPO00837

PATIENT

DRUGS (4)
  1. HYDROCODONE + APAP [Suspect]
     Active Substance: ACETAMINOPHEN\HYDROCODONE BITARTRATE
     Indication: PAIN
     Dosage: 4 TIMES A DAY, EVERY 6 HOURS
     Route: 065
     Dates: start: 20180913
  2. ZIOPTAN [Concomitant]
     Active Substance: TAFLUPROST
     Indication: EYE PAIN
     Dosage: ONCE A DAY AT BED TIME
     Route: 065
  3. LISINOPRIL. [Concomitant]
     Active Substance: LISINOPRIL
     Indication: BLOOD PRESSURE MEASUREMENT
     Dosage: 10 MG, TWICE A DAY
     Route: 065
     Dates: start: 2017
  4. PILOCARPINE. [Concomitant]
     Active Substance: PILOCARPINE
     Indication: EYE PAIN
     Dosage: 1 TO 2 TIMES A DAY
     Route: 065

REACTIONS (9)
  - Sleep disorder [Unknown]
  - Rash generalised [Unknown]
  - Throat irritation [Unknown]
  - Headache [Unknown]
  - Eye pruritus [Unknown]
  - Stomatitis [Unknown]
  - Blood pressure increased [Unknown]
  - Cough [Unknown]
  - Rhinorrhoea [Unknown]
